FAERS Safety Report 11325449 (Version 5)
Quarter: 2015Q4

REPORT INFORMATION
  Report Type: Spontaneous
  Country: US (occurrence: US)
  Receive Date: 20150730
  Receipt Date: 20151016
  Transmission Date: 20160304
  Serious: Yes (Hospitalization, Other)
  Sender: FDA-Public Use
  Company Number: US-JNJFOC-20150721864

PATIENT
  Age: 86 Year
  Sex: Female
  Weight: 57 kg

DRUGS (24)
  1. IMBRUVICA [Suspect]
     Active Substance: IBRUTINIB
     Indication: CHRONIC LYMPHOCYTIC LEUKAEMIA
     Route: 048
     Dates: start: 20141028, end: 20141120
  2. ESTRACE VAGINAL [Concomitant]
  3. IMBRUVICA [Suspect]
     Active Substance: IBRUTINIB
     Indication: MANTLE CELL LYMPHOMA
     Route: 048
     Dates: start: 20150206, end: 201504
  4. DOCUSATE SODIUM. [Concomitant]
     Active Substance: DOCUSATE SODIUM
  5. IMBRUVICA [Suspect]
     Active Substance: IBRUTINIB
     Indication: MANTLE CELL LYMPHOMA
     Route: 048
     Dates: start: 20141003, end: 20141027
  6. ACYCLOVIR. [Concomitant]
     Active Substance: ACYCLOVIR
  7. IMBRUVICA [Suspect]
     Active Substance: IBRUTINIB
     Indication: MANTLE CELL LYMPHOMA
     Route: 048
     Dates: start: 20141028, end: 20141120
  8. IMODIUM [Concomitant]
     Active Substance: LOPERAMIDE HYDROCHLORIDE
  9. VESICARE [Concomitant]
     Active Substance: SOLIFENACIN SUCCINATE
  10. IMBRUVICA [Suspect]
     Active Substance: IBRUTINIB
     Indication: CHRONIC LYMPHOCYTIC LEUKAEMIA
     Route: 048
     Dates: start: 201404
  11. IMBRUVICA [Suspect]
     Active Substance: IBRUTINIB
     Indication: CHRONIC LYMPHOCYTIC LEUKAEMIA
     Route: 048
     Dates: start: 20141003, end: 20141027
  12. ATENOLOL. [Concomitant]
     Active Substance: ATENOLOL
  13. ASPIRIN. [Concomitant]
     Active Substance: ASPIRIN
  14. MELATONIN [Concomitant]
     Active Substance: MELATONIN
  15. AMMONIUM LACTATE. [Concomitant]
     Active Substance: AMMONIUM LACTATE
  16. CHOLECALCIFEROL [Concomitant]
     Active Substance: CHOLECALCIFEROL
  17. HYDROXYPROPYL METHYLCELLULOSE [Concomitant]
  18. SENNA [Concomitant]
     Active Substance: SENNA LEAF\SENNOSIDES\SENNOSIDES A AND B
  19. PROLIA [Concomitant]
     Active Substance: DENOSUMAB
  20. ALPRAZOLAM. [Concomitant]
     Active Substance: ALPRAZOLAM
  21. BENZONATATE. [Concomitant]
     Active Substance: BENZONATATE
  22. IMBRUVICA [Suspect]
     Active Substance: IBRUTINIB
     Indication: CHRONIC LYMPHOCYTIC LEUKAEMIA
     Route: 048
     Dates: start: 20150206, end: 201504
  23. IMBRUVICA [Suspect]
     Active Substance: IBRUTINIB
     Indication: MANTLE CELL LYMPHOMA
     Route: 048
     Dates: start: 201404
  24. CENTRUM SILVER [Concomitant]
     Active Substance: MINERALS\VITAMINS

REACTIONS (13)
  - Fall [Recovering/Resolving]
  - Conjunctival haemorrhage [Unknown]
  - Headache [Unknown]
  - Spinal fracture [Unknown]
  - Asthenia [Recovering/Resolving]
  - Nocturia [Unknown]
  - Oral candidiasis [Unknown]
  - Diarrhoea [Unknown]
  - Laceration [Recovering/Resolving]
  - Soft tissue mass [Unknown]
  - Fatigue [Recovering/Resolving]
  - Pneumonia [Recovering/Resolving]
  - Anxiety [Unknown]

NARRATIVE: CASE EVENT DATE: 201505
